FAERS Safety Report 10306682 (Version 3)
Quarter: 2014Q3

REPORT INFORMATION
  Report Type: Spontaneous
  Country: US (occurrence: US)
  Receive Date: 20140715
  Receipt Date: 20140825
  Transmission Date: 20150326
  Serious: No
  Sender: FDA-Public Use
  Company Number: US-PFIZER INC-2014193838

PATIENT
  Age: 60 Year
  Sex: Female
  Weight: 61.22 kg

DRUGS (1)
  1. ESTRING [Suspect]
     Active Substance: ESTRADIOL
     Indication: VULVOVAGINAL DRYNESS
     Dosage: 2 MG, EVERY 90 DAYS FOR 90 DAYS
     Route: 067
     Dates: start: 20140701, end: 20140702

REACTIONS (4)
  - Vulvovaginal discomfort [Unknown]
  - Muscle spasms [Unknown]
  - Abdominal pain [Unknown]
  - Drug ineffective [Unknown]

NARRATIVE: CASE EVENT DATE: 201407
